FAERS Safety Report 5451656-6 (Version None)
Quarter: 2007Q3

REPORT INFORMATION
  Report Type: 
  Country: None (occurrence: None)
  Receive Date: 20070913
  Receipt Date: 20070905
  Transmission Date: 20080115
  Serious: Yes (Other)
  Sender: FDA-Public Use
  Company Number: US-PFIZER INC-2007059634

PATIENT
  Sex: Male
  Weight: 63.5 kg

DRUGS (1)
  1. NICOTROL [Suspect]
     Indication: SMOKING CESSATION THERAPY

REACTIONS (4)
  - INFLAMMATION [None]
  - INTENTIONAL DRUG MISUSE [None]
  - ORAL DISORDER [None]
  - OSTEOPOROSIS [None]
